FAERS Safety Report 9940748 (Version 1)
Quarter: 2014Q1

REPORT INFORMATION
  Report Type: Spontaneous
  Country: US (occurrence: US)
  Receive Date: 20140303
  Receipt Date: 20140303
  Transmission Date: 20141002
  Serious: No
  Sender: FDA-Public Use
  Company Number: US-PFIZER INC-2014058549

PATIENT
  Age: 76 Year
  Sex: Female

DRUGS (3)
  1. LYRICA [Suspect]
     Indication: BURNING SENSATION
     Dosage: 100 MG, 1X/DAY
  2. LYRICA [Suspect]
     Indication: PAIN IN EXTREMITY
  3. DETROL LA [Concomitant]
     Indication: BLADDER DISORDER
     Dosage: UNK

REACTIONS (1)
  - Pain [Unknown]
